FAERS Safety Report 21672681 (Version 2)
Quarter: 2022Q4

REPORT INFORMATION
  Report Type: Report from Study
  Country: JP (occurrence: JP)
  Receive Date: 20221202
  Receipt Date: 20221213
  Transmission Date: 20230113
  Serious: Yes (Death, Other)
  Sender: FDA-Public Use
  Company Number: JP-CELLTRION INC.-2022JP020007

PATIENT

DRUGS (13)
  1. INVESTIGATIONAL BIOSIMILARS [Suspect]
     Active Substance: INVESTIGATIONAL BIOSIMILARS
     Indication: HER2 positive gastric cancer
     Dosage: 210 MILLIGRAM, EVERY ADMINISTRATION
     Route: 041
     Dates: start: 20220331, end: 20220331
  2. URSODIOL [Concomitant]
     Active Substance: URSODIOL
     Indication: HER2 positive gastric cancer
     Dosage: UNK
     Dates: start: 20220404, end: 20220518
  3. RABEPRAZOLE SODIUM [Concomitant]
     Active Substance: RABEPRAZOLE SODIUM
     Dosage: UNK
     Dates: start: 20220404, end: 20220518
  4. OLMESARTAN [Concomitant]
     Active Substance: OLMESARTAN
     Indication: Hypertension
     Dosage: UNK
     Dates: start: 20220418, end: 20220519
  5. SENNOSIDES [Concomitant]
     Active Substance: SENNOSIDES
     Indication: Constipation
  6. MAGNESIUM OXIDE [Concomitant]
     Active Substance: MAGNESIUM OXIDE
     Indication: Constipation
     Dosage: UNK
     Dates: start: 20220331, end: 20220519
  7. LOXOPROFEN [Concomitant]
     Active Substance: LOXOPROFEN
  8. FERROUS SULFATE [Concomitant]
     Active Substance: FERROUS SULFATE
     Dosage: UNK
     Dates: start: 20220418, end: 20220518
  9. FUROSEMIDE [Concomitant]
     Active Substance: FUROSEMIDE
     Dosage: UNK
     Dates: start: 20220421, end: 20220519
  10. ACETAMINOPHEN [Concomitant]
     Active Substance: ACETAMINOPHEN
  11. TRAMADOL [Concomitant]
     Active Substance: TRAMADOL
     Indication: HER2 positive gastric cancer
  12. Oxinorm [Concomitant]
     Dosage: UNK
     Dates: start: 20220404, end: 20220423
  13. LEVOFLOXACIN HEMIHYDRATE [Concomitant]
     Active Substance: LEVOFLOXACIN

REACTIONS (5)
  - HER2 positive gastric cancer [Fatal]
  - Liver abscess [Recovering/Resolving]
  - Insomnia [Not Recovered/Not Resolved]
  - Haemorrhoids [Recovered/Resolved]
  - Underdose [Unknown]

NARRATIVE: CASE EVENT DATE: 20220413
